FAERS Safety Report 9542024 (Version 1)
Quarter: 2013Q3

REPORT INFORMATION
  Report Type: Spontaneous
  Country: FR (occurrence: FR)
  Receive Date: 20130923
  Receipt Date: 20130923
  Transmission Date: 20140515
  Serious: Yes (Hospitalization)
  Sender: FDA-Public Use
  Company Number: PHHY2013FR104531

PATIENT
  Age: 67 Year
  Sex: Female

DRUGS (7)
  1. ACLASTA [Suspect]
     Dosage: 5 MG, UNK
     Route: 042
     Dates: start: 20090130
  2. SOLU MEDROL [Suspect]
     Dosage: 50 MG, UNK
     Route: 042
     Dates: start: 20090128
  3. SOLU MEDROL [Suspect]
     Dosage: 50 MG, UNK
     Route: 042
     Dates: start: 20090129
  4. SOLU MEDROL [Suspect]
     Dosage: 50 MG, UNK
     Route: 042
     Dates: start: 20090130
  5. CORTANCYL [Suspect]
     Dosage: 15 MG, UNK
     Route: 048
     Dates: start: 200902
  6. PLAQUENIL [Suspect]
     Dosage: 400 MG, (200 MG 2 IN 1 DAY)
     Route: 048
     Dates: start: 200807, end: 200908
  7. IMUREL [Suspect]
     Dosage: 100 MG,(50 MG, 2 IN DAY)
     Route: 048
     Dates: start: 20090407, end: 20090505

REACTIONS (1)
  - Progressive multifocal leukoencephalopathy [Recovered/Resolved with Sequelae]
